FAERS Safety Report 9409887 (Version 2)
Quarter: 2013Q3

REPORT INFORMATION
  Report Type: Spontaneous
  Country: US (occurrence: US)
  Receive Date: 20130719
  Receipt Date: 20130724
  Transmission Date: 20140515
  Serious: Yes (Hospitalization)
  Sender: FDA-Public Use
  Company Number: US-ROXANE LABORATORIES, INC.-2013-RO-01172RO

PATIENT
  Age: 70 Year
  Sex: Female
  Weight: 93 kg

DRUGS (8)
  1. PREDNISONE [Suspect]
     Indication: INTERSTITIAL LUNG DISEASE
     Dosage: 30 MG
     Route: 048
     Dates: start: 20110515, end: 20130115
  2. PREDNISONE [Suspect]
     Indication: IDIOPATHIC PULMONARY FIBROSIS
     Dosage: 10 MG
     Route: 048
     Dates: start: 20130115
  3. SINGULAR [Concomitant]
     Indication: DYSPNOEA
  4. ALBUTEROL [Concomitant]
     Indication: DYSPNOEA
  5. N-ACETYLCYSTEINE [Concomitant]
  6. SYMBICORT [Concomitant]
     Route: 055
     Dates: start: 20120115
  7. BACTRIM [Concomitant]
     Route: 048
     Dates: start: 20130415, end: 20130615
  8. BACTRIM [Concomitant]
     Route: 048
     Dates: start: 20130615

REACTIONS (5)
  - Organising pneumonia [Recovered/Resolved]
  - Lung infection [Recovered/Resolved]
  - Dyspnoea [Recovered/Resolved]
  - Spinal compression fracture [Recovered/Resolved]
  - Osteoporosis [Unknown]
